FAERS Safety Report 19067710 (Version 2)
Quarter: 2022Q2

REPORT INFORMATION
  Report Type: Other
  Country: US (occurrence: None)
  Receive Date: 20210329
  Receipt Date: 20220421
  Transmission Date: 20220720
  Serious: Yes (Other)
  Sender: FDA-Public Use
  Company Number: US-ROCHE-2781800

PATIENT
  Sex: Female

DRUGS (2)
  1. XELODA [Suspect]
     Active Substance: CAPECITABINE
     Indication: Malignant lymphoid neoplasm
     Dosage: TAKE TWO TABLETS OF 500 MG AND 2 TABLETS OF 150 MG FOR DOSE OF 1300 MG IN MORNING TWICE DAILY FOR TW
     Route: 048
  2. XELODA [Suspect]
     Active Substance: CAPECITABINE
     Dosage: TAKE 2 TABLET BY MOUTH TWICE A DAY WITH150MG TABS FOR 1300 MG TWICE DAILY 2 WEEK ON, 1 WEEK
     Route: 048

REACTIONS (2)
  - Off label use [Unknown]
  - Pulmonary thrombosis [Unknown]
